FAERS Safety Report 22035164 (Version 2)
Quarter: 2023Q1

REPORT INFORMATION
  Report Type: Spontaneous
  Country: AR (occurrence: AR)
  Receive Date: 20230224
  Receipt Date: 20230323
  Transmission Date: 20230417
  Serious: Yes (Hospitalization, Other)
  Sender: FDA-Public Use
  Company Number: AR-PFIZER INC-PV202300035021

PATIENT
  Age: 68 Year
  Sex: Male

DRUGS (5)
  1. SUTENT [Suspect]
     Active Substance: SUNITINIB MALATE
     Indication: Renal cancer
     Dosage: 50 MG
     Dates: start: 20170412, end: 20211030
  2. SUTENT [Suspect]
     Active Substance: SUNITINIB MALATE
     Dosage: UNK
     Dates: end: 20220612
  3. SUNITINIB MALEATE [Suspect]
     Active Substance: SUNITINIB MALEATE
     Dosage: UNK
     Dates: start: 20211101, end: 20220320
  4. FLUOXETINE HYDROCHLORIDE [Suspect]
     Active Substance: FLUOXETINE HYDROCHLORIDE
     Indication: Renal cancer
     Dosage: 37.5 MG
     Dates: start: 20220321, end: 20220612
  5. PANTOPRAZOLE [Concomitant]
     Active Substance: PANTOPRAZOLE
     Dosage: 40 MG, DAILY

REACTIONS (7)
  - Gastric haemorrhage [Unknown]
  - Haematochezia [Unknown]
  - Oesophageal ulcer [Recovered/Resolved]
  - Gastric ulcer [Unknown]
  - Duodenal ulcer [Recovered/Resolved]
  - Neoplasm progression [Not Recovered/Not Resolved]
  - Vomiting [Unknown]

NARRATIVE: CASE EVENT DATE: 20220601
